FAERS Safety Report 9283345 (Version 1)
Quarter: 2013Q2

REPORT INFORMATION
  Report Type: Spontaneous
  Country: US (occurrence: US)
  Receive Date: 20130510
  Receipt Date: 20130510
  Transmission Date: 20140414
  Serious: No
  Sender: FDA-Public Use
  Company Number: US-GLAXOSMITHKLINE-A0999723A

PATIENT
  Age: 84 Year
  Sex: Female

DRUGS (1)
  1. TYKERB [Suspect]
     Indication: METASTASES TO LIVER
     Dosage: 1000MG PER DAY
     Route: 048
     Dates: start: 2010

REACTIONS (1)
  - Diarrhoea [Unknown]
